FAERS Safety Report 7968854-X (Version None)
Quarter: 2011Q4

REPORT INFORMATION
  Report Type: 
  Country: None (occurrence: None)
  Receive Date: 20111209
  Receipt Date: 20111203
  Transmission Date: 20120403
  Serious: Yes (Other)
  Sender: FDA-Public Use
  Company Number: PHHY2011JP94344

PATIENT
  Age: 62 Week
  Sex: Female

DRUGS (3)
  1. CYCLOPHOSPHAMIDE [Suspect]
     Indication: BREAST CANCER
     Dosage: 600 MG/M2, OVER 30 MIN
     Route: 041
  2. DEXAMETHASONE [Concomitant]
     Dosage: 8 MG, IN THE MORNING AND IN THE EVENING, FROM THE DAY AFTER THE CHEMOTHERAPY.
     Route: 048
  3. DOCETAXEL [Suspect]
     Indication: BREAST CANCER
     Dosage: 75 MG/M2, OVER 60 MIN
     Route: 041

REACTIONS (3)
  - MYALGIA [None]
  - UPPER RESPIRATORY TRACT INFLAMMATION [None]
  - ARTHRALGIA [None]
